FAERS Safety Report 9248750 (Version 2)
Quarter: 2013Q2

REPORT INFORMATION
  Report Type: Report from Study
  Country: JP (occurrence: JP)
  Receive Date: 20130423
  Receipt Date: 20130521
  Transmission Date: 20140414
  Serious: Yes (Other)
  Sender: FDA-Public Use
  Company Number: JP-009507513-1207JPN002511

PATIENT
  Age: 60 Year
  Sex: Male
  Weight: 82 kg

DRUGS (10)
  1. REBETOL [Suspect]
     Indication: CHRONIC HEPATITIS C
     Dosage: 400 MG, BID
     Route: 048
     Dates: start: 20100104, end: 20100706
  2. FERON [Suspect]
     Indication: CHRONIC HEPATITIS C
     Dosage: 3 MILLION-BILLION UNIT, BID
     Route: 041
     Dates: start: 20100104, end: 20100124
  3. FERON [Suspect]
     Dosage: 6 MILLION-BILLION UNIT, TIW
     Route: 041
     Dates: start: 20100125, end: 20100705
  4. NEOPHAGEN INJECTION [Concomitant]
     Indication: CHRONIC HEPATITIS C
     Dosage: 100 ML, TIW
     Route: 051
     Dates: start: 200608
  5. URSO [Concomitant]
     Indication: CHRONIC HEPATITIS C
     Dosage: 600MG, QD, THE DIVIDED DOSE FREQUENCY IS UNCERTAIN.
     Route: 048
  6. TAKEPRON [Concomitant]
     Indication: GASTROOESOPHAGEAL REFLUX DISEASE
     Dosage: 15MG,QD, THE DIVIDED DOSE FREQUENCY IS UNCERTAIN.
     Route: 048
  7. GASMOTIN [Concomitant]
     Indication: GASTRITIS
     Dosage: 15MG,QD, THE DIVIDED DOSE FREQUENCY IS UNCERTAIN.
     Route: 048
  8. JUVELA N [Concomitant]
     Indication: HYPERLIPIDAEMIA
     Dosage: 300MG,QD, THE DIVIDED DOSE FREQUENCY IS UNCERTAIN.
     Route: 048
  9. NIPOLAZIN [Concomitant]
     Indication: PRURITUS
     Dosage: 6MG,QD, THE DIVIDED DOSE FREQUENCY IS UNCERTAIN.
     Route: 048
  10. ASPARA K [Concomitant]
     Indication: HYPOKALAEMIA
     Dosage: 2400 MG, QD, THE DIVIDED DOSE FREQUENCY IS UNCERTAIN
     Route: 048

REACTIONS (3)
  - Platelet count decreased [Recovering/Resolving]
  - Pyrexia [Recovered/Resolved]
  - Malaise [Recovering/Resolving]
